FAERS Safety Report 7232676-8 (Version None)
Quarter: 2011Q1

REPORT INFORMATION
  Report Type: 
  Country: None (occurrence: None)
  Receive Date: 20110119
  Receipt Date: 20110104
  Transmission Date: 20110831
  Serious: No
  Sender: FDA-Public Use
  Company Number: US-B.I. PHARMACEUTICALS,INC./RIDGEFIELD-2011-BP-00639BP

PATIENT
  Age: 91 Year
  Sex: Male

DRUGS (3)
  1. MEDICATIONS NOT FURTHER SPECIFIED [Concomitant]
     Indication: HYPERTENSION
  2. PRADAXA [Suspect]
     Indication: ATRIAL FIBRILLATION
     Route: 048
     Dates: start: 20101201
  3. MEDICATIONS NOT FURTHER SPECIFIED [Concomitant]
     Indication: MACULAR DEGENERATION

REACTIONS (2)
  - DIZZINESS [None]
  - PRURITUS [None]
